FAERS Safety Report 20854148 (Version 1)
Quarter: 2022Q2

REPORT INFORMATION
  Report Type: Spontaneous
  Country: US (occurrence: None)
  Receive Date: 20220519
  Receipt Date: 20220519
  Transmission Date: 20220720
  Serious: Yes (Hospitalization)
  Sender: FDA-Public Use
  Company Number: None

PATIENT
  Age: 51 Year
  Sex: Male
  Weight: 84.6 kg

DRUGS (4)
  1. PAXLOVID [Suspect]
     Active Substance: NIRMATRELVIR\RITONAVIR
     Indication: COVID-19
     Dosage: FREQUENCY : TWICE A DAY;?
     Route: 048
     Dates: start: 20220502, end: 20220507
  2. TACROLIMUS [Concomitant]
     Active Substance: TACROLIMUS
     Dates: end: 20220502
  3. TACROLIMUS [Concomitant]
     Active Substance: TACROLIMUS
     Dates: start: 20220508, end: 20220510
  4. TACROLIMUS [Concomitant]
     Active Substance: TACROLIMUS
     Dates: start: 20220514

REACTIONS (6)
  - Product dose omission issue [None]
  - Feeling abnormal [None]
  - Drug level increased [None]
  - Blood creatinine increased [None]
  - Procedural site reaction [None]
  - Swelling [None]

NARRATIVE: CASE EVENT DATE: 20220502
